FAERS Safety Report 10720565 (Version 1)
Quarter: 2015Q1

REPORT INFORMATION
  Report Type: Spontaneous
  Country: US (occurrence: US)
  Receive Date: 20150119
  Receipt Date: 20150119
  Transmission Date: 20150721
  Serious: No
  Sender: FDA-Public Use
  Company Number: US-UNITED THERAPEUTICS-UNT-2014-009077

PATIENT
  Sex: Female
  Weight: 92.52 kg

DRUGS (2)
  1. PRILOSEC [Suspect]
     Active Substance: OMEPRAZOLE MAGNESIUM
     Indication: PRODUCT USED FOR UNKNOWN INDICATION
     Route: 065
  2. TYVASO [Suspect]
     Active Substance: TREPROSTINIL
     Indication: PULMONARY ARTERIAL HYPERTENSION
     Dosage: 18-54 MICROGRAMS, QID
     Dates: start: 20140930

REACTIONS (8)
  - Localised oedema [Unknown]
  - Ear pain [Unknown]
  - Nasopharyngitis [Unknown]
  - Throat irritation [Unknown]
  - Headache [Unknown]
  - Lower respiratory tract infection [Unknown]
  - Oedema peripheral [Unknown]
  - Cough [Unknown]

NARRATIVE: CASE EVENT DATE: 2014
